FAERS Safety Report 23377440 (Version 2)
Quarter: 2024Q3

REPORT INFORMATION
  Report Type: Spontaneous
  Country: US (occurrence: US)
  Receive Date: 20240108
  Receipt Date: 20240718
  Transmission Date: 20241016
  Serious: Yes (Other)
  Sender: ACCORD
  Company Number: US-MLMSERVICE-2023122147370861

PATIENT
  Age: 23 Year
  Sex: Female

DRUGS (7)
  1. HYDROXYCHLOROQUINE [Suspect]
     Active Substance: HYDROXYCHLOROQUINE
     Indication: Systemic lupus erythematosus
  2. LOSARTAN [Concomitant]
     Active Substance: LOSARTAN
  3. APIXABAN [Concomitant]
     Active Substance: APIXABAN
  4. MYCOPHENOLIC ACID [Concomitant]
     Active Substance: MYCOPHENOLIC ACID
  5. COLCHICINE [Concomitant]
     Active Substance: COLCHICINE
  6. NIFEDIPINE [Concomitant]
     Active Substance: NIFEDIPINE
  7. LABETALOL [Concomitant]
     Active Substance: LABETALOL\LABETALOL HYDROCHLORIDE

REACTIONS (3)
  - Hypertrophic cardiomyopathy [Unknown]
  - Pericardial effusion [Unknown]
  - Cerebral artery occlusion [Unknown]
